FAERS Safety Report 9711419 (Version 1)
Quarter: 2013Q4

REPORT INFORMATION
  Report Type: Spontaneous
  Country: US (occurrence: US)
  Receive Date: 20131126
  Receipt Date: 20131126
  Transmission Date: 20140711
  Serious: No
  Sender: FDA-Public Use
  Company Number: US-BRISTOL-MYERS SQUIBB COMPANY-19382720

PATIENT
  Age: 52 Year
  Sex: Female
  Weight: 82.54 kg

DRUGS (3)
  1. BYETTA PEN DISPOSABLE [Suspect]
     Indication: TYPE 2 DIABETES MELLITUS
     Route: 058
     Dates: start: 2013
  2. GLUCOPHAGE [Concomitant]
  3. GLIPIZIDE [Concomitant]

REACTIONS (2)
  - Injection site pain [Unknown]
  - Wrong technique in drug usage process [Unknown]
